FAERS Safety Report 22162606 (Version 2)
Quarter: 2023Q2

REPORT INFORMATION
  Report Type: Spontaneous
  Country: US (occurrence: US)
  Receive Date: 20230331
  Receipt Date: 20230409
  Transmission Date: 20230722
  Serious: No
  Sender: FDA-Public Use
  Company Number: US-TEVA-2023-US-2870618

PATIENT
  Age: 56 Year
  Sex: Female

DRUGS (1)
  1. ZOLPIDEM [Suspect]
     Active Substance: ZOLPIDEM TARTRATE
     Indication: Insomnia
     Dosage: SINCE OCT-NOV 2022
     Route: 065

REACTIONS (3)
  - Drug effect less than expected [Unknown]
  - Somnolence [Unknown]
  - Illness [Unknown]

NARRATIVE: CASE EVENT DATE: 20230312
